FAERS Safety Report 9535532 (Version 2)
Quarter: 2013Q3

REPORT INFORMATION
  Report Type: Spontaneous
  Country: JP (occurrence: JP)
  Receive Date: 20130918
  Receipt Date: 20130918
  Transmission Date: 20140515
  Serious: Yes (Life-Threatening)
  Sender: FDA-Public Use
  Company Number: JP-ROCHE-1266398

PATIENT
  Age: 79 Year
  Sex: Male
  Weight: 49 kg

DRUGS (6)
  1. XELODA [Suspect]
     Indication: COLON CANCER
     Dosage: IT IS ADMINISTER/ONE WEEKLY HOLIDAY MEDICINE FOR TWO WEEKS.
     Route: 048
     Dates: start: 20120920, end: 20130321
  2. ELPLAT [Suspect]
     Indication: COLON CANCER
     Route: 041
     Dates: start: 20120920, end: 20130321
  3. GRANISETRON HYDROCHLORIDE [Concomitant]
     Indication: PROPHYLAXIS
     Route: 042
     Dates: start: 20120920, end: 20130321
  4. DEXART [Concomitant]
     Indication: PROPHYLAXIS
     Route: 041
     Dates: start: 20120920, end: 20130321
  5. DECADRON [Concomitant]
     Indication: PROPHYLAXIS
     Route: 048
     Dates: start: 20120921, end: 20130322
  6. LOPEMIN [Concomitant]
     Indication: PROPHYLAXIS
     Route: 048
     Dates: start: 20120921, end: 20130427

REACTIONS (1)
  - Interstitial lung disease [Recovered/Resolved]
